FAERS Safety Report 8012330-5 (Version None)
Quarter: 2011Q4

REPORT INFORMATION
  Report Type: 
  Country: None (occurrence: None)
  Receive Date: 20111228
  Receipt Date: 20111219
  Transmission Date: 20120403
  Serious: Yes (Other)
  Sender: FDA-Public Use
  Company Number: US-ASTRAZENECA-2011SE77083

PATIENT
  Sex: Male

DRUGS (2)
  1. TOPROL-XL [Suspect]
     Route: 048
  2. LISINOPRIL [Suspect]
     Route: 048

REACTIONS (2)
  - OSTEOPOROSIS [None]
  - MYOCARDIAL INFARCTION [None]
